FAERS Safety Report 6937243-9 (Version None)
Quarter: 2010Q3

REPORT INFORMATION
  Report Type: 
  Country: None (occurrence: None)
  Receive Date: 20100823
  Receipt Date: 20100813
  Transmission Date: 20110219
  Serious: Yes (Hospitalization)
  Sender: FDA-Public Use
  Company Number: A0877011A

PATIENT
  Age: 38 Year
  Sex: Male

DRUGS (1)
  1. AVANDIA [Suspect]
     Indication: DIABETES MELLITUS
     Route: 048
     Dates: start: 20060515, end: 20061101

REACTIONS (4)
  - ANHEDONIA [None]
  - ANXIETY [None]
  - MYOCARDIAL INFARCTION [None]
  - PAIN [None]
